FAERS Safety Report 9536294 (Version 2)
Quarter: 2013Q4

REPORT INFORMATION
  Report Type: Spontaneous
  Country: GB (occurrence: GB)
  Receive Date: 20130919
  Receipt Date: 20131004
  Transmission Date: 20140711
  Serious: Yes (Hospitalization)
  Sender: FDA-Public Use
  Company Number: GB-RANBAXY-2013R1-73262

PATIENT
  Age: 76 Year
  Sex: Female
  Weight: 60 kg

DRUGS (3)
  1. NAPROXEN [Suspect]
     Indication: ARTHRALGIA
     Dosage: 500 MG, BID
     Route: 048
     Dates: start: 20130823, end: 20130827
  2. DIGOXIN [Concomitant]
     Indication: PRODUCT USED FOR UNKNOWN INDICATION
     Dosage: UNK
     Route: 065
  3. WARFARIN [Concomitant]
     Indication: PRODUCT USED FOR UNKNOWN INDICATION
     Dosage: UNK
     Route: 065

REACTIONS (1)
  - Rectal haemorrhage [Recovered/Resolved with Sequelae]
